FAERS Safety Report 5667464-7 (Version None)
Quarter: 2008Q1

REPORT INFORMATION
  Report Type: 
  Country: None (occurrence: None)
  Receive Date: 20080315
  Receipt Date: 20080123
  Transmission Date: 20080703
  Serious: No
  Sender: FDA-Public Use
  Company Number: US-ABBOTT-08P-163-0434874-00

PATIENT
  Sex: Female

DRUGS (6)
  1. HUMIRA [Suspect]
     Indication: RHEUMATOID ARTHRITIS
     Route: 058
  2. HUMIRA [Suspect]
     Route: 058
     Dates: start: 20080123
  3. HUMIRA [Suspect]
     Route: 058
     Dates: start: 20040101
  4. ESOMEPRAZOLE MAGNESIUM [Concomitant]
     Indication: GASTROOESOPHAGEAL REFLUX DISEASE
  5. ESCITALOPRAM OXALATE [Concomitant]
     Indication: DEPRESSION
  6. MONTELUKAST SODIUM [Concomitant]
     Indication: HYPERSENSITIVITY

REACTIONS (5)
  - NASAL CONGESTION [None]
  - PAIN [None]
  - RESPIRATORY TRACT CONGESTION [None]
  - SWELLING [None]
  - TREMOR [None]
